FAERS Safety Report 6171981-3 (Version None)
Quarter: 2009Q2

REPORT INFORMATION
  Report Type: 
  Country: None (occurrence: None)
  Receive Date: 20090429
  Receipt Date: 20090421
  Transmission Date: 20091009
  Serious: Yes (Other)
  Sender: FDA-Public Use
  Company Number: PHEH2009US02613

PATIENT
  Sex: Female
  Weight: 91.61 kg

DRUGS (8)
  1. ZOMETA [Suspect]
     Indication: METASTASES TO BONE
     Dosage: UNK
     Dates: start: 20081219, end: 20090213
  2. ZOMETA [Suspect]
     Dosage: UNK
     Dates: start: 20090116, end: 20090116
  3. ZOMETA [Suspect]
     Dosage: UNK
     Dates: start: 20090213, end: 20090213
  4. BETAXOLOL [Concomitant]
     Dosage: 2.5 MG, UNK
  5. ACHROMYCIN [Concomitant]
  6. FISH OIL [Concomitant]
  7. CALCIUM [Concomitant]
  8. ZANAFLEX [Concomitant]
     Dosage: 2 MG, TID PRN

REACTIONS (15)
  - BLEPHAROSPASM [None]
  - BONE PAIN [None]
  - EYE DISORDER [None]
  - INFLUENZA LIKE ILLNESS [None]
  - LYMPHOCYTE PERCENTAGE DECREASED [None]
  - LYMPHOEDEMA [None]
  - MEAN CELL HAEMOGLOBIN INCREASED [None]
  - MEAN PLATELET VOLUME DECREASED [None]
  - NAUSEA [None]
  - OEDEMA PERIPHERAL [None]
  - PAIN IN JAW [None]
  - PALPITATIONS [None]
  - PYREXIA [None]
  - RED BLOOD CELL COUNT DECREASED [None]
  - VISUAL IMPAIRMENT [None]
